FAERS Safety Report 8129202-8 (Version None)
Quarter: 2012Q1

REPORT INFORMATION
  Report Type: 
  Country: None (occurrence: None)
  Receive Date: 20120210
  Receipt Date: 20111115
  Transmission Date: 20120608
  Serious: No
  Sender: FDA-Public Use
  Company Number: US-BRISTOL-MYERS SQUIBB COMPANY-16232472

PATIENT
  Sex: Female

DRUGS (1)
  1. ORENCIA [Suspect]
     Dosage: LAST INF ON 7NOV11
     Dates: start: 20111001

REACTIONS (5)
  - ABDOMINAL DISCOMFORT [None]
  - NAUSEA [None]
  - HEADACHE [None]
  - VOMITING [None]
  - DIARRHOEA [None]
